FAERS Safety Report 5299511-9 (Version None)
Quarter: 2007Q1

REPORT INFORMATION
  Report Type: 
  Country: None (occurrence: None)
  Receive Date: 20070201
  Receipt Date: 20061030
  Transmission Date: 20070707
  Serious: No
  Sender: FDA-Public Use
  Company Number: 2006PV024188

PATIENT
  Age: 68 Year
  Sex: Male
  Weight: 123.3784 kg

DRUGS (5)
  1. BYETTA [Suspect]
     Indication: DIABETES MELLITUS NON-INSULIN-DEPENDENT
     Dosage: SEE IMAGE
     Route: 058
     Dates: start: 20051001, end: 20051101
  2. BYETTA [Suspect]
     Indication: DIABETES MELLITUS NON-INSULIN-DEPENDENT
     Dosage: SEE IMAGE
     Route: 058
     Dates: start: 20051101
  3. ACTOS [Concomitant]
  4. FORTAMET ER [Concomitant]
  5. ASPIRIN [Concomitant]

REACTIONS (2)
  - CHILLS [None]
  - WEIGHT DECREASED [None]
